FAERS Safety Report 7992176-4 (Version None)
Quarter: 2011Q4

REPORT INFORMATION
  Report Type: 
  Country: None (occurrence: None)
  Receive Date: 20111219
  Receipt Date: 20110401
  Transmission Date: 20120403
  Serious: No
  Sender: FDA-Public Use
  Company Number: US-ASTRAZENECA-2007UW07073

PATIENT
  Age: 60 Year
  Sex: Female
  Weight: 89.4 kg

DRUGS (7)
  1. AVANDIA [Concomitant]
  2. MULTI-VITAMIN [Concomitant]
  3. LASIX [Concomitant]
  4. INSULIN [Concomitant]
  5. CRESTOR [Suspect]
     Indication: HYPERCHOLESTEROLAEMIA
     Route: 048
     Dates: start: 20060101
  6. PRANDIN [Concomitant]
  7. FISH OIL [Concomitant]

REACTIONS (4)
  - LARYNGITIS [None]
  - MYALGIA [None]
  - MUSCULAR WEAKNESS [None]
  - BRONCHITIS [None]
